FAERS Safety Report 4292097-7 (Version None)
Quarter: 2004Q1

REPORT INFORMATION
  Report Type: 
  Country: None (occurrence: None)
  Receive Date: 20040211
  Receipt Date: 20031208
  Transmission Date: 20041129
  Serious: No
  Sender: FDA-Public Use
  Company Number: US-GLAXOSMITHKLINE-A0442345A

PATIENT
  Age: 46 Year
  Sex: Female

DRUGS (4)
  1. LAMICTAL [Suspect]
     Indication: BIPOLAR DISORDER
     Dosage: 25MG PER DAY
     Route: 048
     Dates: start: 20031125, end: 20031207
  2. LITHIUM [Concomitant]
  3. MULTIVITAMIN [Concomitant]
  4. LEXAPRO [Concomitant]

REACTIONS (4)
  - BRADYPHRENIA [None]
  - DYSKINESIA [None]
  - IMPAIRED DRIVING ABILITY [None]
  - TONGUE BITING [None]
